FAERS Safety Report 5678684-X (Version None)
Quarter: 2008Q1

REPORT INFORMATION
  Report Type: 
  Country: None (occurrence: None)
  Receive Date: 20080320
  Receipt Date: 20080310
  Transmission Date: 20080703
  Serious: Yes (Hospitalization)
  Sender: FDA-Public Use
  Company Number: 2008AL001497

PATIENT
  Age: 19 Year
  Sex: Female

DRUGS (6)
  1. CITALOPRAM HYDROBROMIDE [Suspect]
     Indication: ANXIETY
     Dosage: 10 MG; QD; PO
     Route: 048
  2. ACETAMINOPHEN AND CAFFEINE [Concomitant]
  3. METOCLOPRAMIDE [Concomitant]
  4. METAMIZOL [Concomitant]
  5. DIAZEPAM [Concomitant]
  6. NSAID [Concomitant]

REACTIONS (3)
  - HEMIANOPIA HOMONYMOUS [None]
  - MIGRAINE WITH AURA [None]
  - NO THERAPEUTIC RESPONSE [None]
